FAERS Safety Report 26185764 (Version 1)
Quarter: 2025Q4

REPORT INFORMATION
  Report Type: Spontaneous
  Country: JP (occurrence: JP)
  Receive Date: 20251222
  Receipt Date: 20251222
  Transmission Date: 20260118
  Serious: Yes (Death, Hospitalization, Other)
  Sender: MERCK SHARP & DOHME LLC
  Company Number: JP-009507513-2361351

PATIENT
  Age: 7 Decade
  Sex: Female

DRUGS (2)
  1. KEYTRUDA [Suspect]
     Active Substance: PEMBROLIZUMAB
     Indication: Triple negative breast cancer
     Route: 041
     Dates: start: 202308, end: 20241115
  2. HALAVEN [Concomitant]
     Active Substance: ERIBULIN MESYLATE
     Indication: Triple negative breast cancer
     Route: 065
     Dates: end: 2025

REACTIONS (7)
  - Meningitis [Fatal]
  - Immune-mediated lung disease [Fatal]
  - Malignant neoplasm progression [Unknown]
  - Hyponatraemia [Fatal]
  - Stress cardiomyopathy [Fatal]
  - Immune-mediated adrenal insufficiency [Fatal]
  - Septic shock [Fatal]

NARRATIVE: CASE EVENT DATE: 20250401
